FAERS Safety Report 9056250 (Version 3)
Quarter: 2013Q2

REPORT INFORMATION
  Report Type: Spontaneous
  Country: BR (occurrence: BR)
  Receive Date: 20130205
  Receipt Date: 20130404
  Transmission Date: 20140414
  Serious: Yes (Other)
  Sender: FDA-Public Use
  Company Number: BR-PFIZER INC-2013043678

PATIENT
  Sex: Female

DRUGS (3)
  1. FRONTAL [Suspect]
     Indication: ANXIETY
     Dosage: 1 TABLET DAILY (0.25 MG, 1X/DAY)
     Route: 048
     Dates: start: 201211
  2. METOCLOPRAMIDE [Concomitant]
     Indication: ABDOMINAL PAIN UPPER
     Dosage: UNK
  3. NEOSALDINA [Concomitant]
     Dosage: UNK

REACTIONS (10)
  - Presyncope [Unknown]
  - Hypoglycaemia [Unknown]
  - Nausea [Unknown]
  - Muscular weakness [Unknown]
  - Feeling cold [Unknown]
  - Poor quality sleep [Unknown]
  - Vertigo [Unknown]
  - Vision blurred [Not Recovered/Not Resolved]
  - Sinusitis [Unknown]
  - Headache [Unknown]
